FAERS Safety Report 24452258 (Version 1)
Quarter: 2024Q4

REPORT INFORMATION
  Report Type: Spontaneous
  Country: US (occurrence: US)
  Receive Date: 20241017
  Receipt Date: 20241017
  Transmission Date: 20250115
  Serious: No
  Sender: SUNOVION
  Company Number: US-SMPA-202402-URV-000147AA

PATIENT
  Age: 68 Year
  Sex: Female

DRUGS (1)
  1. GEMTESA [Suspect]
     Active Substance: VIBEGRON
     Indication: Hypertonic bladder
     Dosage: 1 TABLET, QD
     Route: 048
     Dates: start: 202311, end: 202312

REACTIONS (1)
  - Urinary tract infection [Not Recovered/Not Resolved]
